FAERS Safety Report 7331745-1 (Version None)
Quarter: 2011Q1

REPORT INFORMATION
  Report Type: 
  Country: None (occurrence: None)
  Receive Date: 20110304
  Receipt Date: 20110304
  Transmission Date: 20110831
  Serious: Yes (Hospitalization)
  Sender: FDA-Public Use
  Company Number: PHHO2008NL02993

PATIENT
  Sex: Female
  Weight: 68 kg

DRUGS (5)
  1. PLACEBO [Suspect]
     Indication: CARCINOID TUMOUR
     Dosage: PLACEBO
     Route: 048
     Dates: start: 20070629, end: 20080105
  2. PLACEBO [Suspect]
     Dosage: NO TREATMENT
     Dates: start: 20080105, end: 20080126
  3. SANDOSTATIN LAR [Suspect]
     Indication: CARCINOID TUMOUR
     Route: 048
  4. SANDOSTATIN LAR [Suspect]
     Dosage: 100 MG, TID
     Route: 058
  5. PLACEBO [Suspect]
     Dosage: PLACEBO
     Route: 048
     Dates: start: 20080126

REACTIONS (4)
  - MALIGNANT TUMOUR EXCISION [None]
  - ABDOMINAL PAIN [None]
  - SIGMOIDECTOMY [None]
  - METASTASIS [None]
